FAERS Safety Report 11071002 (Version 8)
Quarter: 2015Q3

REPORT INFORMATION
  Report Type: Report from Study
  Country: DE (occurrence: DE)
  Receive Date: 20150428
  Receipt Date: 20150715
  Transmission Date: 20151125
  Serious: Yes (Hospitalization)
  Sender: FDA-Public Use
  Company Number: DE-ROCHE-1568412

PATIENT
  Age: 49 Year
  Sex: Male
  Weight: 81.3 kg

DRUGS (26)
  1. ONDANSETRON [Concomitant]
     Active Substance: ONDANSETRON
     Indication: PROPHYLAXIS
     Route: 048
     Dates: start: 20141117, end: 20150423
  2. DEXAMETHASONE. [Concomitant]
     Active Substance: DEXAMETHASONE
     Indication: PROPHYLAXIS
     Route: 048
     Dates: start: 20141117, end: 20141117
  3. MESNA. [Concomitant]
     Active Substance: MESNA
     Indication: PROPHYLAXIS
     Route: 042
     Dates: start: 20141118, end: 20150407
  4. PARACETAMOL [Concomitant]
     Active Substance: ACETAMINOPHEN
     Indication: FEBRILE NEUTROPENIA
     Route: 042
     Dates: start: 20150423, end: 20150425
  5. CYCLOPHOSPHAMIDE. [Suspect]
     Active Substance: CYCLOPHOSPHAMIDE
     Indication: CHRONIC LYMPHOCYTIC LEUKAEMIA
     Dosage: LAST DOSE PRIOR TO SE: 09/APR/2015
     Route: 042
     Dates: start: 20141118
  6. ALIZAPRIDE [Concomitant]
     Active Substance: ALIZAPRIDE
     Indication: PROPHYLAXIS
     Route: 042
     Dates: start: 20141118, end: 20150407
  7. JONOSTERIL [Concomitant]
     Active Substance: CALCIUM ACETATE\MAGNESIUM ACETATE\POTASSIUM ACETATE\SODIUM ACETATE\SODIUM CHLORIDE
     Indication: PROPHYLAXIS
     Route: 042
     Dates: start: 20141118, end: 20150409
  8. FENISTIL (GERMANY) [Concomitant]
     Indication: PROPHYLAXIS
     Route: 042
     Dates: start: 20141118
  9. OBINUTUZUMAB [Suspect]
     Active Substance: OBINUTUZUMAB
     Indication: CHRONIC LYMPHOCYTIC LEUKAEMIA
     Dosage: FREQUENCY AS PER PROTOCOL : DAYS 1/2 OF CYCLE 1 SPLIT DOSE (100MG/900MG), DAY 8 AND 15 OF CYCLE 1 FU
     Route: 042
     Dates: start: 20141118
  10. PANTOPRAZOLE SODIUM. [Concomitant]
     Active Substance: PANTOPRAZOLE SODIUM
     Indication: PROPHYLAXIS
     Route: 048
     Dates: start: 20141117
  11. PREDNISOLON [Concomitant]
     Active Substance: PREDNISOLONE
     Indication: PROPHYLAXIS
     Route: 042
     Dates: start: 20150113, end: 20150407
  12. FLUDARABINE [Suspect]
     Active Substance: FLUDARABINE PHOSPHATE
     Indication: CHRONIC LYMPHOCYTIC LEUKAEMIA
     Dosage: LAST DOSE PRIOR TO SE: 09/APR/2015
     Route: 042
     Dates: start: 20141118
  13. PARACETAMOL [Concomitant]
     Active Substance: ACETAMINOPHEN
     Indication: PROPHYLAXIS
     Route: 048
     Dates: start: 20141125, end: 20150409
  14. VOMEX (UNK INGREDIENTS) [Concomitant]
     Route: 042
     Dates: start: 20150211, end: 20150211
  15. ZOPICLON [Concomitant]
     Active Substance: ZOPICLONE
     Route: 048
     Dates: start: 20150312, end: 20150423
  16. DEXAMETHASONE. [Concomitant]
     Active Substance: DEXAMETHASONE
     Route: 048
     Dates: start: 20141120, end: 20150407
  17. RANITIDIN [Concomitant]
     Active Substance: RANITIDINE HYDROCHLORIDE
     Indication: PROPHYLAXIS
     Route: 042
     Dates: start: 20141118, end: 20150408
  18. AMPHO MORONAL [Concomitant]
     Indication: PROPHYLAXIS
     Route: 048
     Dates: start: 20150310
  19. MCP [Concomitant]
     Active Substance: METOCLOPRAMIDE HYDROCHLORIDE
     Route: 048
     Dates: start: 20150311, end: 20150407
  20. COTRIMAZOL [Concomitant]
     Indication: PROPHYLAXIS
     Route: 048
     Dates: start: 20150429
  21. CIPROFLOXACIN. [Concomitant]
     Active Substance: CIPROFLOXACIN
     Indication: FEBRILE NEUTROPENIA
     Route: 048
     Dates: start: 20150129, end: 20150602
  22. ALLOPURINOL. [Concomitant]
     Active Substance: ALLOPURINOL
     Indication: PROPHYLAXIS
     Route: 048
     Dates: start: 20141117, end: 20150429
  23. SOLU-DECORTIN H [Concomitant]
     Indication: PROPHYLAXIS
     Route: 042
     Dates: start: 20141118, end: 20150407
  24. NATRIUM BICARBONATE [Concomitant]
     Indication: PROPHYLAXIS
     Route: 042
     Dates: start: 20141118, end: 20150407
  25. NATRIUMCHLORID [Concomitant]
     Indication: PROPHYLAXIS
     Route: 042
     Dates: start: 20141117, end: 20150408
  26. AMPHOTERICIN [Concomitant]
     Active Substance: AMPHOTERICIN B
     Route: 048
     Dates: start: 20150129, end: 20150202

REACTIONS (1)
  - Febrile neutropenia [Not Recovered/Not Resolved]

NARRATIVE: CASE EVENT DATE: 20150416
